FAERS Safety Report 17544295 (Version 1)
Quarter: 2020Q1

REPORT INFORMATION
  Report Type: Spontaneous
  Country: US (occurrence: US)
  Receive Date: 20200316
  Receipt Date: 20200316
  Transmission Date: 20200409
  Serious: No
  Sender: FDA-Public Use
  Company Number: US-MYLANLABS-2020M1024678

PATIENT
  Age: 32 Year
  Sex: Female
  Weight: 68 kg

DRUGS (1)
  1. ESTRADIOL TRANSDERMAL SYSTEM [Suspect]
     Active Substance: ESTRADIOL
     Indication: INFERTILITY
     Dosage: 3 MILLIGRAM, QD (MG/DAY  CHANGE EVERY 48 HRS)
     Route: 062
     Dates: start: 201905

REACTIONS (4)
  - Maternal exposure during pregnancy [Unknown]
  - Off label use [Not Recovered/Not Resolved]
  - Wrong technique in product usage process [Not Recovered/Not Resolved]
  - Product adhesion issue [Unknown]

NARRATIVE: CASE EVENT DATE: 201905
